FAERS Safety Report 10331886 (Version 2)
Quarter: 2014Q3

REPORT INFORMATION
  Report Type: Spontaneous
  Country: US (occurrence: US)
  Receive Date: 20140722
  Receipt Date: 20140722
  Transmission Date: 20150326
  Serious: No
  Sender: FDA-Public Use
  Company Number: US-UNITED THERAPEUTICS-UNT-2014-000345

PATIENT
  Sex: Female
  Weight: 78.46 kg

DRUGS (2)
  1. REVATIO [Concomitant]
     Active Substance: SILDENAFIL CITRATE
     Indication: PRODUCT USED FOR UNKNOWN INDICATION
  2. REMODULIN [Suspect]
     Active Substance: TREPROSTINIL
     Indication: PULMONARY ARTERIAL HYPERTENSION
     Dosage: 0.019 ?G/KG/MIN, CONTINUING
     Route: 041
     Dates: start: 20140315

REACTIONS (4)
  - Dizziness [Unknown]
  - Fatigue [Unknown]
  - Seasonal allergy [Unknown]
  - Suture rupture [Unknown]

NARRATIVE: CASE EVENT DATE: 2014
